FAERS Safety Report 5852074-9 (Version None)
Quarter: 2008Q3

REPORT INFORMATION
  Report Type: 
  Country: None (occurrence: None)
  Receive Date: 20080819
  Receipt Date: 20080819
  Transmission Date: 20090109
  Serious: No
  Sender: FDA-Public Use
  Company Number: None

PATIENT
  Sex: Female
  Weight: 60 kg

DRUGS (1)
  1. RITUXAN 500MG AND 100MG GENENTECH [Suspect]
     Indication: CHRONIC LYMPHOCYTIC LEUKAEMIA
     Dosage: 356MG/M2 = 600 MG QWEEK X4 IV DRIP
     Route: 041
     Dates: start: 20080418, end: 20080502

REACTIONS (1)
  - DYSPNOEA [None]
